FAERS Safety Report 5017195-1 (Version None)
Quarter: 2006Q2

REPORT INFORMATION
  Report Type: 
  Country: None (occurrence: None)
  Receive Date: 20060602
  Receipt Date: 20060523
  Transmission Date: 20061013
  Serious: Yes (Other)
  Sender: FDA-Public Use
  Company Number: PL-ABBOTT-06P-129-0334016-00

PATIENT
  Age: 27 Year
  Sex: Female
  Weight: 67 kg

DRUGS (4)
  1. RITONAVIR [Suspect]
     Indication: HIV INFECTION
     Dates: start: 20010301
  2. LAMIVUDINE [Suspect]
     Indication: HIV INFECTION
     Route: 065
     Dates: start: 20010301
  3. AMPRENAVIR [Suspect]
     Indication: HIV INFECTION
     Route: 065
     Dates: start: 20010301
  4. STAVUDINE [Suspect]
     Indication: HIV INFECTION
     Route: 065
     Dates: start: 20010301

REACTIONS (2)
  - BASEDOW'S DISEASE [None]
  - IMMUNE RECONSTITUTION SYNDROME [None]
